FAERS Safety Report 16022136 (Version 1)
Quarter: 2019Q2

REPORT INFORMATION
  Report Type: Spontaneous
  Country: US (occurrence: US)
  Receive Date: 20190301
  Receipt Date: 20190301
  Transmission Date: 20190711
  Serious: Yes (Other)
  Sender: FDA-Public Use
  Company Number: None

PATIENT
  Age: 45 Year
  Sex: Male
  Weight: 78.75 kg

DRUGS (2)
  1. DIAZAPAM [Suspect]
     Active Substance: DIAZEPAM
     Indication: ANXIETY
     Dosage: ?          QUANTITY:180 TABLET(S);?
     Route: 048
  2. DIAZAPAM [Suspect]
     Active Substance: DIAZEPAM
     Indication: AGORAPHOBIA
     Dosage: ?          QUANTITY:180 TABLET(S);?
     Route: 048

REACTIONS (3)
  - Nausea [None]
  - Constipation [None]
  - Product substitution issue [None]

NARRATIVE: CASE EVENT DATE: 20181124
